FAERS Safety Report 9472103 (Version 1)
Quarter: 2013Q3

REPORT INFORMATION
  Report Type: Spontaneous
  Country: US (occurrence: US)
  Receive Date: 20130823
  Receipt Date: 20130823
  Transmission Date: 20140515
  Serious: No
  Sender: FDA-Public Use
  Company Number: US-009507513-1308USA002987

PATIENT
  Age: 30 Year
  Sex: Female
  Weight: 63.49 kg

DRUGS (1)
  1. NEXPLANON [Suspect]
     Indication: CONTRACEPTION
     Dosage: 1 ROD UP TO 3 YEARS/LEFT ARM IMPLANT
     Route: 059
     Dates: start: 20121015

REACTIONS (5)
  - Anxiety [Unknown]
  - Vaginal haemorrhage [Unknown]
  - Depression [Unknown]
  - Mood swings [Unknown]
  - Insomnia [Unknown]
